FAERS Safety Report 20957283 (Version 3)
Quarter: 2022Q3

REPORT INFORMATION
  Report Type: Spontaneous
  Country: ES (occurrence: ES)
  Receive Date: 20220614
  Receipt Date: 20220815
  Transmission Date: 20221027
  Serious: Yes (Other)
  Sender: FDA-Public Use
  Company Number: ES-Zentiva-2022-ZT-004388

PATIENT
  Age: 25 Year
  Sex: Female

DRUGS (2)
  1. PREGABALIN [Suspect]
     Active Substance: PREGABALIN
     Dosage: 75 MG, 2X/DAY
     Route: 048
  2. AMITRIPTYLINE [Suspect]
     Active Substance: AMITRIPTYLINE
     Indication: Vulvovaginal pain
     Dosage: 10 MG, 1X/DAY
     Route: 048

REACTIONS (3)
  - Drug intolerance [Unknown]
  - Confusional state [Unknown]
  - Dizziness [Unknown]
